FAERS Safety Report 23015926 (Version 2)
Quarter: 2023Q4

REPORT INFORMATION
  Report Type: Spontaneous
  Country: IL (occurrence: IL)
  Receive Date: 20231002
  Receipt Date: 20231109
  Transmission Date: 20240110
  Serious: Yes (Death, Hospitalization, Other)
  Sender: FDA-Public Use
  Company Number: IL-JNJFOC-20230950000

PATIENT
  Age: 82 Year
  Sex: Female
  Weight: 54 kg

DRUGS (10)
  1. VELCADE [Suspect]
     Active Substance: BORTEZOMIB
     Indication: Primary amyloidosis
     Dosage: 1.95 MILLIGRAM, 1/WEEK
     Route: 058
     Dates: start: 20230705, end: 20230801
  2. DARZALEX [Suspect]
     Active Substance: DARATUMUMAB
     Indication: Primary amyloidosis
     Dosage: UNK
     Route: 065
     Dates: start: 20230705
  3. CYCLOPHOSPHAMIDE [Suspect]
     Active Substance: CYCLOPHOSPHAMIDE
     Indication: Urosepsis
     Dosage: UNK
     Route: 065
     Dates: start: 20230705
  4. ALDACTONE [Concomitant]
     Active Substance: SPIRONOLACTONE
     Dosage: UNK
     Route: 065
  5. Fusid [Concomitant]
     Dosage: UNK
     Route: 065
  6. ATORVASTATIN CALCIUM [Concomitant]
     Active Substance: ATORVASTATIN CALCIUM
     Dosage: UNK
     Route: 065
  7. MODAL [Concomitant]
     Dosage: UNK
     Route: 065
  8. ZAROXOLYN [Concomitant]
     Active Substance: METOLAZONE
     Dosage: UNK
     Route: 065
     Dates: start: 20230801
  9. CEFUROXIME [Concomitant]
     Active Substance: CEFUROXIME
     Dosage: UNK
     Route: 065
     Dates: start: 20230803, end: 20230807
  10. POTASSIUM CHLORIDE [Concomitant]
     Active Substance: POTASSIUM CHLORIDE
     Dosage: UNK
     Route: 065
     Dates: start: 20230806, end: 20230807

REACTIONS (7)
  - Urosepsis [Fatal]
  - Oxygen saturation decreased [Unknown]
  - Pleural effusion [Unknown]
  - Hypokalaemia [Unknown]
  - Atrial fibrillation [Unknown]
  - Renal failure [Unknown]
  - Off label use [Unknown]

NARRATIVE: CASE EVENT DATE: 20230731
